FAERS Safety Report 11849872 (Version 12)
Quarter: 2021Q1

REPORT INFORMATION
  Report Type: Report from Study
  Country: US (occurrence: US)
  Receive Date: 20151218
  Receipt Date: 20210219
  Transmission Date: 20210419
  Serious: Yes (Death, Hospitalization, Other)
  Sender: FDA-Public Use
  Company Number: US-CELGENEUS-USA-2014100629

PATIENT
  Age: 83 Year
  Sex: Male
  Weight: 70 kg

DRUGS (8)
  1. PRBC TRANSFUSION [Concomitant]
     Route: 065
     Dates: start: 20130610, end: 20130610
  2. PRBC TRANSFUSION [Concomitant]
     Route: 065
     Dates: start: 20130613, end: 20130613
  3. DECADRON [Suspect]
     Active Substance: DEXAMETHASONE
     Indication: PLASMA CELL MYELOMA
     Dosage: 40 MILLIGRAM
     Route: 048
     Dates: start: 20100422, end: 20110406
  4. ZOMETA [Concomitant]
     Active Substance: ZOLEDRONIC ACID
     Indication: MYELODYSPLASTIC SYNDROME
     Route: 065
     Dates: start: 20100430
  5. PRBC TRANSFUSION [Concomitant]
     Indication: PRODUCT USED FOR UNKNOWN INDICATION
     Dosage: 4 UNITS
     Route: 065
     Dates: start: 20130506
  6. PRBC TRANSFUSION [Concomitant]
     Dosage: 1 IU (INTERNATIONAL UNIT)
     Route: 065
  7. PRBC TRANSFUSION [Concomitant]
     Route: 065
     Dates: start: 20130611, end: 20130611
  8. REVLIMID [Suspect]
     Active Substance: LENALIDOMIDE
     Indication: PLASMA CELL MYELOMA
     Dosage: 10 MILLIGRAM
     Route: 048
     Dates: start: 20100422, end: 20130825

REACTIONS (9)
  - Angina pectoris [Recovered/Resolved]
  - Anaemia [Recovered/Resolved]
  - Pneumonia [Not Recovered/Not Resolved]
  - Asthenia [Not Recovered/Not Resolved]
  - Plasma cell myeloma [Fatal]
  - Hypokalaemia [Unknown]
  - Pancytopenia [Not Recovered/Not Resolved]
  - Acute kidney injury [Unknown]
  - Angina pectoris [Recovered/Resolved]

NARRATIVE: CASE EVENT DATE: 20120105
